FAERS Safety Report 13108680 (Version 1)
Quarter: 2017Q1

REPORT INFORMATION
  Report Type: Spontaneous
  Country: US (occurrence: US)
  Receive Date: 20170111
  Receipt Date: 20170111
  Transmission Date: 20170428
  Serious: Yes (Hospitalization)
  Sender: FDA-Public Use
  Company Number: None

PATIENT
  Age: 25 Year
  Sex: Female
  Weight: 92.1 kg

DRUGS (2)
  1. BENTYL [Concomitant]
     Active Substance: DICYCLOMINE HYDROCHLORIDE
  2. ELUXADOLINE [Suspect]
     Active Substance: ELUXADOLINE

REACTIONS (7)
  - Abdominal pain upper [None]
  - Chest pain [None]
  - Vomiting [None]
  - Nausea [None]
  - Sphincter of Oddi dysfunction [None]
  - Pain [None]
  - Back pain [None]

NARRATIVE: CASE EVENT DATE: 20170109
